FAERS Safety Report 22381597 (Version 3)
Quarter: 2023Q4

REPORT INFORMATION
  Report Type: Report from Study
  Country: US (occurrence: US)
  Receive Date: 20230530
  Receipt Date: 20231220
  Transmission Date: 20240110
  Serious: Yes (Other)
  Sender: FDA-Public Use
  Company Number: US-ABBVIE-5184382

PATIENT
  Sex: Female
  Weight: 71.667 kg

DRUGS (14)
  1. RINVOQ [Suspect]
     Active Substance: UPADACITINIB
     Indication: Colitis ulcerative
     Dosage: FORM STRENGTH: 30 MG?STOP DATE: 2023
     Route: 048
     Dates: start: 202301
  2. RINVOQ [Suspect]
     Active Substance: UPADACITINIB
     Indication: Colitis ulcerative
     Dosage: FORM STRENGTH: 30 MG
     Route: 048
     Dates: start: 20230423
  3. RINVOQ [Suspect]
     Active Substance: UPADACITINIB
     Indication: Colitis ulcerative
     Dosage: FORM STRENGTH: 30 MG?STOP DATE: 2023
     Route: 048
     Dates: start: 20230312
  4. FOLIC ACID [Concomitant]
     Active Substance: FOLIC ACID
     Indication: Product used for unknown indication
     Dosage: FORM STRENGTH: 1 MILLIGRAM?TAKE 1 TABLET BY MOUTH DAILY
     Route: 048
     Dates: start: 20230220
  5. VERZENIO [Concomitant]
     Active Substance: ABEMACICLIB
     Indication: Breast cancer female
     Dosage: FORM STRENGTH: 100 MILLIGRAM
     Dates: start: 20220827
  6. VERZENIO [Concomitant]
     Active Substance: ABEMACICLIB
     Indication: Breast cancer female
     Dosage: FORM STRENGTH: 100 MILLIGRAM
     Dates: start: 20230526
  7. VITAMIN D3 [Concomitant]
     Active Substance: CHOLECALCIFEROL
     Indication: Product used for unknown indication
     Route: 048
     Dates: start: 20190716
  8. VENLAFAXINE [Concomitant]
     Active Substance: VENLAFAXINE HYDROCHLORIDE
     Indication: Product used for unknown indication
     Dosage: 37.5 MG ORAL CAPSULE EXTENDED RELEASE 24 HOUR?HCI
     Route: 048
     Dates: start: 20230220
  9. ENTYVIO [Suspect]
     Active Substance: VEDOLIZUMAB
     Indication: Product used for unknown indication
     Route: 065
  10. VITAMIN C [Concomitant]
     Active Substance: ASCORBIC ACID
     Indication: Product used for unknown indication
     Dosage: FORM STRENGTH: 500 MILLIGRAM?TAKE 1 BY ORAL ROUTE DAILY
     Route: 048
     Dates: start: 20230328
  11. ATIVAN [Concomitant]
     Active Substance: LORAZEPAM
     Indication: Product used for unknown indication
     Dosage: FORM STRENGTH 1 MILLIGRAM
     Route: 048
     Dates: start: 20230601
  12. MACROBID [Concomitant]
     Active Substance: NITROFURANTOIN\NITROFURANTOIN MONOHYDRATE
     Indication: Product used for unknown indication
     Dosage: FORM STRENGTH 100 MILLIGRAM? TAKE 1 CAPSULE BY EVERY 12 HOURS
     Route: 048
     Dates: start: 20230624, end: 20230630
  13. LETROZOLE [Concomitant]
     Active Substance: LETROZOLE
     Indication: Product used for unknown indication
     Dosage: FORM STRENGTH: 2.5 MILLIGRAM?TAKE 1 TABLET BY MOUTH EVERY DAY
     Route: 048
     Dates: start: 20230601
  14. SULFASALAZINE [Concomitant]
     Active Substance: SULFASALAZINE
     Indication: Product used for unknown indication
     Dosage: FORM STRENGTH: 500 MILLIGRAM?TAKE TABLET BY MOUTH TWO TIMES A DAY
     Route: 048
     Dates: start: 20220911

REACTIONS (2)
  - Breast cancer female [Unknown]
  - Back pain [Unknown]

NARRATIVE: CASE EVENT DATE: 20230101
